FAERS Safety Report 15438206 (Version 1)
Quarter: 2018Q3

REPORT INFORMATION
  Report Type: Spontaneous
  Country: ES (occurrence: ES)
  Receive Date: 20180928
  Receipt Date: 20180928
  Transmission Date: 20181010
  Serious: Yes (Other)
  Sender: FDA-Public Use
  Company Number: ES-AMGEN-ESPSP2018126957

PATIENT
  Age: 68 Year
  Sex: Female

DRUGS (6)
  1. ATORVASTATIN [Concomitant]
     Active Substance: ATORVASTATIN
     Dosage: 20 MG, UNK
  2. PROLIA [Suspect]
     Active Substance: DENOSUMAB
     Indication: OSTEOPOROSIS
     Dosage: UNK UNK, Q6MO
     Route: 058
     Dates: start: 20170916
  3. ADIRO [Concomitant]
     Active Substance: ASPIRIN
     Dosage: 100 MG, UNK
  4. HIDROFEROL [Concomitant]
     Active Substance: CALCIFEDIOL
     Dosage: 1 DF, EVERY 15 DAYS
  5. ENANTYUM [Concomitant]
     Active Substance: DEXKETOPROFEN TROMETAMOL
     Indication: PAIN
     Dosage: UNK, AS NECESSARY
  6. PARACETAMOL [Concomitant]
     Active Substance: ACETAMINOPHEN
     Indication: PAIN
     Dosage: 1 G, AS NECESSARY

REACTIONS (4)
  - Foraminotomy [Unknown]
  - Dental implantation [Unknown]
  - Spinal laminectomy [Unknown]
  - Feeling cold [Unknown]

NARRATIVE: CASE EVENT DATE: 2018
